FAERS Safety Report 17904312 (Version 3)
Quarter: 2022Q1

REPORT INFORMATION
  Report Type: Spontaneous
  Country: PL (occurrence: PL)
  Receive Date: 20200617
  Receipt Date: 20220307
  Transmission Date: 20220423
  Serious: Yes (Hospitalization, Other)
  Sender: FDA-Public Use
  Company Number: PL-TEVA-2020-PL-1788115

PATIENT
  Age: 32 Year
  Sex: Male

DRUGS (7)
  1. ESCITALOPRAM [Interacting]
     Active Substance: ESCITALOPRAM OXALATE
     Indication: Depression
     Dosage: 10 MILLIGRAM DAILY; AT THE MORNING
     Route: 065
  2. ESOMEPRAZOLE [Interacting]
     Active Substance: ESOMEPRAZOLE
     Indication: Abdominal pain
     Dosage: 40 MILLIGRAM DAILY;
     Route: 065
  3. METAMIZOLE [Interacting]
     Active Substance: METAMIZOLE
     Indication: Pyrexia
     Route: 065
  4. DEXTROMETHORPHAN [Interacting]
     Active Substance: DEXTROMETHORPHAN
     Indication: Cough
     Route: 065
  5. PERAZINE [Interacting]
     Active Substance: PERAZINE
     Indication: Sleep disorder
     Dosage: AT NIGHT
  6. ACETAMINOPHEN\CHLORPHENIRAMINE\PSEUDOEPHEDRINE [Interacting]
     Active Substance: ACETAMINOPHEN\CHLORPHENIRAMINE\PSEUDOEPHEDRINE
     Indication: Upper respiratory tract infection
     Dosage: PARACETAMOL/PSEUDOEPHEDRINE/CHLORPHENIRAMINE MALEATE
     Route: 065
  7. PROMETHAZINE [Suspect]
     Active Substance: PROMETHAZINE HYDROCHLORIDE
     Indication: Cough
     Dosage: 150 MILLIGRAM DAILY;
     Route: 065

REACTIONS (6)
  - Drug ineffective [Unknown]
  - Drug interaction [Unknown]
  - Serotonin syndrome [Recovered/Resolved]
  - Sedation [Recovered/Resolved]
  - Abdominal pain [Recovered/Resolved]
  - Upper respiratory tract infection [Recovered/Resolved]
